FAERS Safety Report 12853972 (Version 2)
Quarter: 2016Q4

REPORT INFORMATION
  Report Type: Report from Study
  Country: JP (occurrence: JP)
  Receive Date: 20161017
  Receipt Date: 20161102
  Transmission Date: 20170207
  Serious: Yes (Hospitalization, Other)
  Sender: FDA-Public Use
  Company Number: JP-TAKEDA-2016TJP019006AA

PATIENT
  Age: 65 Year
  Sex: Male
  Weight: 54.5 kg

DRUGS (16)
  1. AMARYL [Concomitant]
     Active Substance: GLIMEPIRIDE
     Indication: TYPE 2 DIABETES MELLITUS
     Dosage: 0.5 MG, UNK
     Route: 048
     Dates: start: 20141001, end: 20141125
  2. AMARYL [Concomitant]
     Active Substance: GLIMEPIRIDE
     Dosage: 2 MG, UNK
     Route: 048
     Dates: start: 20150625, end: 20150721
  3. NEXIUM [Concomitant]
     Active Substance: ESOMEPRAZOLE MAGNESIUM
     Dosage: UNK
     Route: 048
  4. ALOGLIPTIN. [Suspect]
     Active Substance: ALOGLIPTIN
     Indication: TYPE 2 DIABETES MELLITUS
     Dosage: 12.5 MG, QD
     Route: 048
     Dates: start: 20130702, end: 20140722
  5. BIOLACTIS [Concomitant]
     Active Substance: LACTOBACILLUS CASEI
     Dosage: UNK
     Route: 048
  6. AMARYL [Concomitant]
     Active Substance: GLIMEPIRIDE
     Dosage: 1 MG, UNK
     Route: 048
     Dates: start: 20141126, end: 20141225
  7. AMARYL [Concomitant]
     Active Substance: GLIMEPIRIDE
     Dosage: 1 MG, UNK
     Route: 048
     Dates: start: 20150120, end: 20150413
  8. NORVASC [Concomitant]
     Active Substance: AMLODIPINE BESYLATE
     Dosage: UNK
     Route: 048
  9. BASEN                              /01290601/ [Concomitant]
     Active Substance: VOGLIBOSE
     Indication: TYPE 2 DIABETES MELLITUS
     Dosage: 0.6 MG, UNK
     Route: 048
     Dates: start: 20141029, end: 20141125
  10. AMARYL [Concomitant]
     Active Substance: GLIMEPIRIDE
     Dosage: 1.5 MG, UNK
     Route: 048
     Dates: start: 20141226, end: 20150119
  11. AMARYL [Concomitant]
     Active Substance: GLIMEPIRIDE
     Dosage: 2 MG, UNK
     Route: 048
     Dates: start: 20150414, end: 20150518
  12. LANTUS [Concomitant]
     Active Substance: INSULIN GLARGINE
     Indication: TYPE 2 DIABETES MELLITUS
     Dosage: 6 IU, UNK
     Route: 050
     Dates: start: 20150625, end: 20150728
  13. LANTUS [Concomitant]
     Active Substance: INSULIN GLARGINE
     Dosage: 2 IU, UNK
     Route: 050
     Dates: start: 20150729, end: 20150811
  14. MAGLAX [Concomitant]
     Active Substance: MAGNESIUM OXIDE
     Dosage: UNK
     Route: 048
  15. ALOGLIPTIN. [Suspect]
     Active Substance: ALOGLIPTIN
     Dosage: 25 MG, QD
     Route: 048
     Dates: start: 20140723, end: 20150721
  16. AMARYL [Concomitant]
     Active Substance: GLIMEPIRIDE
     Dosage: 2.5 MG, UNK
     Route: 048
     Dates: start: 20150519, end: 20150624

REACTIONS (1)
  - Bladder cancer [Recovering/Resolving]

NARRATIVE: CASE EVENT DATE: 20141128
